FAERS Safety Report 6044486-8 (Version None)
Quarter: 2009Q1

REPORT INFORMATION
  Report Type: 
  Country: None (occurrence: None)
  Receive Date: 20090114
  Receipt Date: 20090114
  Transmission Date: 20090719
  Serious: Yes (Other)
  Sender: FDA-Public Use
  Company Number: None

PATIENT
  Age: 82 Year
  Sex: Female
  Weight: 67.1324 kg

DRUGS (19)
  1. VESICARE [Suspect]
     Indication: HYPERTONIC BLADDER
     Dosage: 5 MG DAILY P.O.
     Route: 048
     Dates: start: 20080730, end: 20080929
  2. ACTONEL [Concomitant]
  3. LEVOXYL [Concomitant]
  4. LOTENSIN [Concomitant]
  5. NORVASC [Concomitant]
  6. LASIX [Concomitant]
  7. TOPROL-XL [Concomitant]
  8. ECOTREN [Concomitant]
  9. LIPITOR [Concomitant]
  10. FLEXERIL [Concomitant]
  11. ARTHROTIC [Concomitant]
  12. VICODIN [Concomitant]
  13. LUNESTA [Concomitant]
  14. CA + VIT D [Concomitant]
  15. REQUIP [Concomitant]
  16. VYTORIN [Concomitant]
  17. MIRAPEX [Concomitant]
  18. TYLENOL [Concomitant]
  19. VITAMIN B-12 [Concomitant]

REACTIONS (1)
  - ERYTHEMA MULTIFORME [None]
